FAERS Safety Report 25335595 (Version 2)
Quarter: 2025Q3

REPORT INFORMATION
  Report Type: Spontaneous
  Country: US (occurrence: US)
  Receive Date: 20250520
  Receipt Date: 20250705
  Transmission Date: 20251020
  Serious: Yes (Hospitalization, Other)
  Sender: ACCORD
  Company Number: US-Accord-485297

PATIENT
  Age: 28 Year
  Sex: Female
  Weight: 50.0 kg

DRUGS (24)
  1. IRINOTECAN [Suspect]
     Active Substance: IRINOTECAN
     Indication: Ewing^s sarcoma
     Dosage: Q3WEEKS, IV DRIP
     Route: 042
     Dates: start: 20250303, end: 20250303
  2. TEMOZOLOMIDE [Suspect]
     Active Substance: TEMOZOLOMIDE
     Indication: Ewing^s sarcoma
     Dosage: Q3WEEKS
     Dates: start: 20250303, end: 20250303
  3. ZOFRAN [Concomitant]
     Active Substance: ONDANSETRON HYDROCHLORIDE
     Dates: start: 20240803
  4. PROCHLORPERAZINE [Concomitant]
     Active Substance: PROCHLORPERAZINE
     Dates: start: 20250114
  5. MIRALAX [Concomitant]
     Active Substance: POLYETHYLENE GLYCOL 3350
     Dates: start: 20241210
  6. SENOKOT [Concomitant]
     Active Substance: SENNOSIDES
     Dates: start: 20241210
  7. ASPIRIN [Concomitant]
     Active Substance: ASPIRIN
     Dates: start: 20241210
  8. FENTANYL [Concomitant]
     Active Substance: FENTANYL
     Dates: start: 20240224
  9. DILAUDID [Concomitant]
     Active Substance: HYDROMORPHONE HYDROCHLORIDE
     Dates: start: 20250225
  10. ACETYLCYSTEINE [Concomitant]
     Active Substance: ACETYLCYSTEINE
     Dates: start: 20250305
  11. REGLAN [Concomitant]
     Active Substance: METOCLOPRAMIDE HYDROCHLORIDE
     Dates: start: 20250305
  12. CEFEPIME [Concomitant]
     Active Substance: CEFEPIME HYDROCHLORIDE
     Dates: start: 20250304, end: 20250406
  13. VANCOMYCIN [Concomitant]
     Active Substance: VANCOMYCIN
     Dates: start: 20250401, end: 20250403
  14. FLAGYL [Concomitant]
     Active Substance: METRONIDAZOLE\METRONIDAZOLE HYDROCHLORIDE
     Dates: start: 20250403, end: 20250417
  15. PEGFILGRASTIM [Concomitant]
     Active Substance: PEGFILGRASTIM
     Dates: start: 20250419, end: 20250419
  16. ATIVAN [Concomitant]
     Active Substance: LORAZEPAM
     Dates: start: 20250318
  17. SCOPOLAMINE [Concomitant]
     Active Substance: SCOPOLAMINE
     Dates: start: 20250323
  18. GRANISETRON [Concomitant]
     Active Substance: GRANISETRON
     Dates: start: 20250414
  19. EMEND [Concomitant]
     Active Substance: APREPITANT
     Dates: start: 20250319
  20. CIPRO [Concomitant]
     Active Substance: CIPROFLOXACIN HYDROCHLORIDE
     Dates: start: 20250407, end: 20250417
  21. FOSAPREPITANT DIMEGLUMINE [Concomitant]
     Active Substance: FOSAPREPITANT DIMEGLUMINE
     Dates: start: 20250319
  22. IRINOTECAN [Suspect]
     Active Substance: IRINOTECAN
     Indication: Ewing^s sarcoma
     Dosage: Q3WEEKS, IV DRIP
     Route: 042
     Dates: start: 20250505, end: 20250505
  23. IRINOTECAN [Suspect]
     Active Substance: IRINOTECAN
     Indication: Ewing^s sarcoma
     Dosage: Q3WEEKS, IV DRIP
     Route: 042
     Dates: start: 20250414, end: 20250418
  24. TEMOZOLOMIDE [Suspect]
     Active Substance: TEMOZOLOMIDE
     Indication: Ewing^s sarcoma
     Dosage: Q3WEEKS
     Dates: start: 20250414, end: 20250418

REACTIONS (1)
  - Neutropenic colitis [Recovered/Resolved]

NARRATIVE: CASE EVENT DATE: 20250421
